FAERS Safety Report 6366605-6 (Version None)
Quarter: 2009Q3

REPORT INFORMATION
  Report Type: 
  Country: None (occurrence: None)
  Receive Date: 20090921
  Receipt Date: 20090909
  Transmission Date: 20100115
  Serious: Yes (Life-Threatening, Hospitalization, Disabling)
  Sender: FDA-Public Use
  Company Number: FR-WYE-H10999409

PATIENT
  Sex: Female

DRUGS (3)
  1. CORDARONE [Suspect]
     Indication: ATRIAL FIBRILLATION
     Route: 048
     Dates: start: 20081208, end: 20081211
  2. LOVENOX [Concomitant]
     Route: 058
     Dates: start: 20081208, end: 20081211
  3. LOVENOX [Concomitant]
     Route: 058
     Dates: start: 20080101

REACTIONS (2)
  - BRADYCARDIA [None]
  - ISCHAEMIC STROKE [None]
